FAERS Safety Report 16016270 (Version 1)
Quarter: 2019Q1

REPORT INFORMATION
  Report Type: Spontaneous
  Country: US (occurrence: US)
  Receive Date: 20190227
  Receipt Date: 20190227
  Transmission Date: 20190418
  Serious: No
  Sender: FDA-Public Use
  Company Number: None

PATIENT
  Age: 57 Year
  Sex: Female

DRUGS (1)
  1. RELISTOR [Suspect]
     Active Substance: METHYLNALTREXONE BROMIDE
     Indication: CONSTIPATION
     Dosage: ?          OTHER FREQUENCY:Q 48 HOURS;?
     Route: 058

REACTIONS (2)
  - Tremor [None]
  - Muscle spasms [None]

NARRATIVE: CASE EVENT DATE: 20190227
